FAERS Safety Report 16776048 (Version 2)
Quarter: 2022Q2

REPORT INFORMATION
  Report Type: Report from Study
  Country: GB (occurrence: GB)
  Receive Date: 20190905
  Receipt Date: 20220617
  Transmission Date: 20220721
  Serious: Yes (Hospitalization, Other)
  Sender: FDA-Public Use
  Company Number: GB-JNJFOC-20190837102

PATIENT

DRUGS (12)
  1. USTEKINUMAB [Suspect]
     Active Substance: USTEKINUMAB
     Indication: Crohn^s disease
     Route: 058
     Dates: start: 20171004, end: 20190220
  2. METHOTREXATE [Concomitant]
     Active Substance: METHOTREXATE
     Indication: Crohn^s disease
  3. METHOTREXATE [Concomitant]
     Active Substance: METHOTREXATE
     Indication: Crohn^s disease
  4. LANSOPRAZOLE [Concomitant]
     Active Substance: LANSOPRAZOLE
     Indication: Crohn^s disease
  5. ONDANSETRON [Concomitant]
     Active Substance: ONDANSETRON
     Indication: Crohn^s disease
  6. MIRTAZAPINE [Concomitant]
     Active Substance: MIRTAZAPINE
     Indication: Crohn^s disease
  7. NEFOPAM [Concomitant]
     Active Substance: NEFOPAM
     Indication: Crohn^s disease
  8. LOPERAMIDE [Concomitant]
     Active Substance: LOPERAMIDE
     Indication: Crohn^s disease
     Dosage: 2-08 MG
  9. MORPHINE SULFATE [Concomitant]
     Active Substance: MORPHINE SULFATE
     Indication: Crohn^s disease
     Dosage: 5-10 MG
  10. TRAMADOL [Concomitant]
     Active Substance: TRAMADOL
     Indication: Crohn^s disease
  11. RANITIDINE [Concomitant]
     Active Substance: RANITIDINE
     Indication: Crohn^s disease
  12. FENTANYL [Concomitant]
     Active Substance: FENTANYL

REACTIONS (4)
  - Enterococcal infection [Recovered/Resolved]
  - Immunosuppression [Unknown]
  - Pulmonary embolism [Recovered/Resolved]
  - Crohn^s disease [Recovered/Resolved]

NARRATIVE: CASE EVENT DATE: 20171107
